FAERS Safety Report 10012496 (Version 4)
Quarter: 2014Q2

REPORT INFORMATION
  Report Type: Spontaneous
  Country: US (occurrence: US)
  Receive Date: 20140314
  Receipt Date: 20140411
  Transmission Date: 20141212
  Serious: Yes (Hospitalization, Other)
  Sender: FDA-Public Use
  Company Number: PHEH2014US005135

PATIENT
  Sex: Male

DRUGS (1)
  1. CLOZARIL [Suspect]
     Dosage: 100 MG, UNK

REACTIONS (5)
  - Psychotic disorder [Unknown]
  - Suicidal ideation [Unknown]
  - Nervousness [Unknown]
  - Nausea [Unknown]
  - Drug ineffective [Unknown]
